FAERS Safety Report 9274749 (Version 1)
Quarter: 2013Q2

REPORT INFORMATION
  Report Type: Spontaneous
  Country: US (occurrence: None)
  Receive Date: 20130429
  Receipt Date: 20130429
  Transmission Date: 20140414
  Serious: Yes (Hospitalization)
  Sender: FDA-Public Use
  Company Number: COM-001196

PATIENT
  Age: 36 Year
  Sex: Male
  Weight: 83.92 kg

DRUGS (1)
  1. EQUATE DIPHENHYDRAMINE HCL 50MG SOFTGEL/ACCUCAPS [Suspect]
     Indication: INSOMNIA
     Dosage: 15 PLUS TAKEN AT A TIME
     Route: 048
     Dates: start: 20130418, end: 20130418

REACTIONS (3)
  - Overdose [None]
  - Depression [None]
  - Fatigue [None]
